FAERS Safety Report 11804524 (Version 2)
Quarter: 2015Q4

REPORT INFORMATION
  Report Type: Spontaneous
  Country: JP (occurrence: JP)
  Receive Date: 20151204
  Receipt Date: 20151222
  Transmission Date: 20160305
  Serious: Yes (Hospitalization)
  Sender: FDA-Public Use
  Company Number: PHJP2015JP021260

PATIENT
  Age: 78 Year
  Sex: Female
  Weight: 51 kg

DRUGS (9)
  1. HALOPERIDOL. [Suspect]
     Active Substance: HALOPERIDOL
     Indication: HALLUCINATION, VISUAL
  2. CARBIDOPA. [Suspect]
     Active Substance: CARBIDOPA
     Indication: PRODUCT USED FOR UNKNOWN INDICATION
     Dosage: 10 MG, QD
     Route: 048
  3. BENSERAZIDE [Suspect]
     Active Substance: BENSERAZIDE
     Indication: HALLUCINATION, VISUAL
  4. LEVODOPA [Suspect]
     Active Substance: LEVODOPA
     Indication: HALLUCINATION, AUDITORY
     Dosage: 400 MG, QD
     Route: 048
  5. AMANTADINE [Suspect]
     Active Substance: AMANTADINE
     Indication: PARKINSON^S DISEASE
     Dosage: 100 MG, QD
     Route: 048
  6. AMANTADINE [Suspect]
     Active Substance: AMANTADINE
     Dosage: 100 MG, QD
     Route: 048
  7. BENSERAZIDE [Suspect]
     Active Substance: BENSERAZIDE
     Indication: HALLUCINATION, AUDITORY
     Dosage: 100 MG, QD
     Route: 065
  8. HALOPERIDOL. [Suspect]
     Active Substance: HALOPERIDOL
     Indication: HALLUCINATION, AUDITORY
     Dosage: 0.75 MG, QD
     Route: 065
  9. LEVODOPA [Suspect]
     Active Substance: LEVODOPA
     Indication: HALLUCINATION, VISUAL
     Dosage: 400 MG, QD
     Route: 048

REACTIONS (10)
  - Restlessness [Unknown]
  - Dementia with Lewy bodies [Unknown]
  - Pyrexia [Unknown]
  - Muscle rigidity [Unknown]
  - Hallucination, visual [Unknown]
  - Hallucination, auditory [Unknown]
  - Depressed level of consciousness [Unknown]
  - Neuroleptic malignant syndrome [Unknown]
  - Seizure [Unknown]
  - Blood creatine phosphokinase increased [Unknown]
